FAERS Safety Report 6560616-3 (Version None)
Quarter: 2010Q1

REPORT INFORMATION
  Report Type: 
  Country: None (occurrence: None)
  Receive Date: 20100129
  Receipt Date: 20050602
  Transmission Date: 20100710
  Serious: Yes (Death)
  Sender: FDA-Public Use
  Company Number: US-ALLERGAN-200502294

PATIENT
  Age: 63 Year
  Sex: Female

DRUGS (5)
  1. BOTOX [Suspect]
     Indication: BLEPHAROSPASM
     Dosage: 40UNITS, SINGLE
     Route: 030
     Dates: start: 20050121, end: 20050121
  2. BOTOX [Suspect]
     Dosage: 40UNITS, SINGLE
     Route: 030
     Dates: start: 20040929, end: 20040929
  3. BOTOX [Suspect]
     Dosage: 40UNITS, SINGLE
     Route: 030
     Dates: start: 20040712, end: 20040712
  4. BOTOX [Suspect]
     Dosage: 40UNITS, SINGLE
     Route: 030
     Dates: start: 20040325, end: 20040325
  5. BOTOX [Suspect]
     Dosage: 40UNITS, SINGLE
     Route: 030
     Dates: start: 20031205, end: 20031205

REACTIONS (1)
  - PULMONARY OEDEMA [None]
